FAERS Safety Report 23737361 (Version 1)
Quarter: 2024Q2

REPORT INFORMATION
  Report Type: Spontaneous
  Country: US (occurrence: None)
  Receive Date: 20240411
  Receipt Date: 20240411
  Transmission Date: 20240716
  Serious: Yes (Hospitalization, Other)
  Sender: FDA-Public Use
  Company Number: None

PATIENT
  Age: 80 Year
  Sex: Female
  Weight: 68.04 kg

DRUGS (23)
  1. ONIVYDE [Suspect]
     Active Substance: IRINOTECAN HYDROCHLORIDE
     Indication: Cholangiocarcinoma
     Dosage: FREQUENCY : EVERY OTHER WEEK;?
     Route: 042
     Dates: start: 20240222, end: 20240326
  2. TYLENOL [Concomitant]
     Active Substance: ACETAMINOPHEN
  3. VITAMIN C [Concomitant]
     Active Substance: ASCORBIC ACID
  4. ATORVASTATIN [Concomitant]
     Active Substance: ATORVASTATIN
  5. VITAMIN D3 [Concomitant]
     Active Substance: CHOLECALCIFEROL
  6. VITAMIN B12 [Concomitant]
     Active Substance: CYANOCOBALAMIN
  7. LINZESS [Concomitant]
     Active Substance: LINACLOTIDE
  8. VITAMINS [Concomitant]
     Active Substance: VITAMINS
  9. ATORVASTATIN [Concomitant]
     Active Substance: ATORVASTATIN
  10. VITAMIN D3 [Concomitant]
     Active Substance: CHOLECALCIFEROL
  11. VITAMIN B12 [Concomitant]
     Active Substance: CYANOCOBALAMIN
  12. LINZESS [Concomitant]
     Active Substance: LINACLOTIDE
  13. VITAMINS [Concomitant]
     Active Substance: VITAMINS
  14. ONDANSETRON [Concomitant]
     Active Substance: ONDANSETRON
  15. PROTONIX [Concomitant]
     Active Substance: PANTOPRAZOLE SODIUM
  16. SENNOSIDES [Concomitant]
     Active Substance: SENNOSIDES
  17. SUCRALFATE [Concomitant]
     Active Substance: SUCRALFATE
  18. GARLIC [Concomitant]
     Active Substance: GARLIC
  19. PIPERACILLIN AND TAZOBACTAM [Concomitant]
     Active Substance: PIPERACILLIN SODIUM\TAZOBACTAM SODIUM
  20. Sodium Chloride 0.9% bolus 1000 mL [Concomitant]
  21. Electrolyte-S [Concomitant]
  22. INDOMETHACIN [Concomitant]
     Active Substance: INDOMETHACIN
  23. AMOXICILLIN\CLAVULANIC ACID [Concomitant]
     Active Substance: AMOXICILLIN\CLAVULANIC ACID

REACTIONS (8)
  - Cholangitis [None]
  - Portal vein occlusion [None]
  - Lethargy [None]
  - Nausea [None]
  - Decreased appetite [None]
  - Anaemia [None]
  - Hyponatraemia [None]
  - Blood bilirubin increased [None]

NARRATIVE: CASE EVENT DATE: 20240318
